FAERS Safety Report 20708513 (Version 1)
Quarter: 2022Q2

REPORT INFORMATION
  Report Type: Other
  Country: US (occurrence: None)
  Receive Date: 20220414
  Receipt Date: 20220414
  Transmission Date: 20220721
  Serious: Yes (Death)
  Sender: FDA-Public Use
  Company Number: US-ROCHE-3075695

PATIENT
  Sex: Male

DRUGS (1)
  1. GAVRETO [Suspect]
     Active Substance: PRALSETINIB
     Indication: Bronchial carcinoma
     Dosage: TAKE 4 CAPSULES BY MOUTH EVERY DAY.
     Route: 048

REACTIONS (1)
  - Death [Fatal]
